FAERS Safety Report 6303728-1 (Version None)
Quarter: 2009Q3

REPORT INFORMATION
  Report Type: 
  Country: None (occurrence: None)
  Receive Date: 20090810
  Receipt Date: 20090726
  Transmission Date: 20100115
  Serious: Yes (Other)
  Sender: FDA-Public Use
  Company Number: GB-ROCHE-647392

PATIENT
  Age: 45 Year
  Sex: Female

DRUGS (1)
  1. TAMIFLU [Suspect]
     Route: 065

REACTIONS (8)
  - CRYING [None]
  - DEPRESSION [None]
  - DRUG INEFFECTIVE [None]
  - HEADACHE [None]
  - INFLUENZA [None]
  - MOOD ALTERED [None]
  - PRURITUS [None]
  - RASH [None]
